FAERS Safety Report 8268999-3 (Version None)
Quarter: 2012Q2

REPORT INFORMATION
  Report Type: 
  Country: None (occurrence: None)
  Receive Date: 20120409
  Receipt Date: 20120402
  Transmission Date: 20120825
  Serious: Yes (Other)
  Sender: FDA-Public Use
  Company Number: FR-JNJFOC-20120304051

PATIENT
  Sex: Female
  Weight: 40 kg

DRUGS (6)
  1. CALCIUM CARBONATE W/COLECALCIFEROL [Concomitant]
     Route: 048
  2. RABEPRAZOLE SODIUM [Concomitant]
     Route: 048
     Dates: start: 20110105
  3. ACETAMINOPHEN [Concomitant]
     Route: 048
     Dates: start: 20110105
  4. XARELTO [Suspect]
     Indication: THROMBOSIS PROPHYLAXIS
     Route: 048
     Dates: start: 20120105, end: 20120107
  5. XARELTO [Suspect]
     Indication: HIP ARTHROPLASTY
     Route: 048
     Dates: start: 20120105, end: 20120107
  6. LEVOTHYROXINE SODIUM [Concomitant]
     Route: 048

REACTIONS (1)
  - VENOUS THROMBOSIS [None]
